FAERS Safety Report 5364905-X (Version None)
Quarter: 2007Q2

REPORT INFORMATION
  Report Type: 
  Country: None (occurrence: None)
  Receive Date: 20070530
  Receipt Date: 20070125
  Transmission Date: 20071010
  Serious: No
  Sender: FDA-Public Use
  Company Number: 2007PV029136

PATIENT
  Age: 66 Year
  Sex: Female

DRUGS (4)
  1. BYETTA [Suspect]
     Indication: WEIGHT CONTROL
     Dosage: 5 MCG; BID; SC
     Route: 058
     Dates: start: 20070122
  2. NAPROSYN [Concomitant]
  3. ACCUPRIL [Concomitant]
  4. TOPROL-XL [Concomitant]

REACTIONS (2)
  - BLOOD PRESSURE INCREASED [None]
  - HEADACHE [None]
